FAERS Safety Report 11473287 (Version 1)
Quarter: 2015Q3

REPORT INFORMATION
  Report Type: Spontaneous
  Country: PL (occurrence: PL)
  Receive Date: 20150908
  Receipt Date: 20150908
  Transmission Date: 20151125
  Serious: Yes (Other)
  Sender: FDA-Public Use
  Company Number: PHHY2015PL107357

PATIENT
  Sex: Male
  Weight: 1.6 kg

DRUGS (15)
  1. SOTALOL. [Suspect]
     Active Substance: SOTALOL
     Indication: FOETAL EXPOSURE DURING PREGNANCY
     Dosage: MATERNAL DOSE: 40 MG 1 X 1 TABLET
     Route: 064
  2. ENOXAPARIN [Suspect]
     Active Substance: ENOXAPARIN
     Indication: FOETAL EXPOSURE DURING PREGNANCY
     Dosage: MATERNAL DOSE: 60 MG 1 X 1 S.C.
     Route: 064
  3. DYDROGESTERONE [Suspect]
     Active Substance: DYDROGESTERONE
     Dosage: MATERNAL DOSE: 2 X 1 TABLET
     Route: 064
  4. DYDROGESTERONE [Suspect]
     Active Substance: DYDROGESTERONE
     Dosage: MATERNAL DOSE: 2 X 1 TABLET
     Route: 064
  5. METOPROLOL [Suspect]
     Active Substance: METOPROLOL
     Indication: FOETAL EXPOSURE DURING PREGNANCY
     Dosage: MATERNAL DOSE: 2 X 25 MG
     Route: 064
  6. METOPROLOL [Suspect]
     Active Substance: METOPROLOL
     Dosage: MATERNAL DOSE: 50 MG 2 X 1/2 TABLET
     Route: 064
  7. ENOXAPARIN [Suspect]
     Active Substance: ENOXAPARIN
     Dosage: MATERNAL DOSE: 60 MG 1 X 1 S.C.
     Route: 064
  8. ENOXAPARIN [Suspect]
     Active Substance: ENOXAPARIN
     Dosage: MATERNAL DOSE: 60 MG 1 X 1 S.C.
     Route: 064
  9. ASPIRIN. [Suspect]
     Active Substance: ASPIRIN
     Indication: FOETAL EXPOSURE DURING PREGNANCY
     Dosage: MATERNAL DOSE: 75 MG 1 X 1 TABLET
     Route: 064
  10. PROGESTERONE. [Suspect]
     Active Substance: PROGESTERONE
     Dosage: MATERNAL DOSE: 2 X 2 TABLET
     Route: 064
  11. DYDROGESTERONE [Suspect]
     Active Substance: DYDROGESTERONE
     Indication: FOETAL EXPOSURE DURING PREGNANCY
     Dosage: MATERNAL DOSE: 10 MG 2 X 1 TABLET
     Route: 064
  12. PROGESTERONE. [Suspect]
     Active Substance: PROGESTERONE
     Indication: FOETAL EXPOSURE DURING PREGNANCY
     Dosage: MATERNAL DOSE: 2 X 100 MG VAGINALLY
     Route: 064
  13. PROGESTERONE. [Suspect]
     Active Substance: PROGESTERONE
     Dosage: MATERNAL DOSE: 2 X 100 MG VAGINALLY
     Route: 064
  14. DROTAVERINE [Suspect]
     Active Substance: DROTAVERINE
     Indication: FOETAL EXPOSURE DURING PREGNANCY
     Dosage: MATERNAL DOSE: 40 MG 3 X 1 TABLET
     Route: 064
  15. BETAMETHASONUM [Suspect]
     Active Substance: BETAMETHASONE
     Indication: FOETAL EXPOSURE DURING PREGNANCY
     Route: 064

REACTIONS (3)
  - Premature baby [Unknown]
  - Low birth weight baby [Unknown]
  - Foetal exposure during pregnancy [Unknown]
